FAERS Safety Report 19189600 (Version 2)
Quarter: 2021Q3

REPORT INFORMATION
  Report Type: Spontaneous
  Country: AT (occurrence: AT)
  Receive Date: 20210428
  Receipt Date: 20210701
  Transmission Date: 20211014
  Serious: Yes (Other)
  Sender: FDA-Public Use
  Company Number: NVSC2021AT093662

PATIENT
  Age: 41 Year
  Sex: Male

DRUGS (5)
  1. TACROLIMUS. [Suspect]
     Active Substance: TACROLIMUS
     Indication: SOLID ORGAN TRANSPLANT
     Dosage: UNK (10?12 NG/ML)
     Route: 065
  2. MYCOPHENOLATE MOFETIL. [Suspect]
     Active Substance: MYCOPHENOLATE MOFETIL
     Indication: IMMUNOSUPPRESSANT DRUG THERAPY
     Dosage: 500 MG, QD
     Route: 065
  3. PREDNISOLONE. [Suspect]
     Active Substance: PREDNISOLONE
     Indication: IMMUNOSUPPRESSION
     Dosage: 10 MG, QD
     Route: 065
  4. BELATACEPT [Suspect]
     Active Substance: BELATACEPT
     Indication: IMMUNOSUPPRESSION
     Dosage: UNK
     Route: 065
  5. TACROLIMUS. [Suspect]
     Active Substance: TACROLIMUS
     Indication: IMMUNOSUPPRESSANT DRUG THERAPY

REACTIONS (11)
  - Herpes virus infection [Unknown]
  - Cytomegalovirus infection [Unknown]
  - Aphthous ulcer [Unknown]
  - Alternaria infection [Unknown]
  - Eczema [Unknown]
  - Hypertension [Unknown]
  - Transplant rejection [Unknown]
  - Skin papilloma [Unknown]
  - Off label use [Unknown]
  - Leukopenia [Unknown]
  - Headache [Unknown]
